FAERS Safety Report 12634747 (Version 1)
Quarter: 2016Q3

REPORT INFORMATION
  Report Type: Spontaneous
  Country: US (occurrence: US)
  Receive Date: 20160809
  Receipt Date: 20160809
  Transmission Date: 20161109
  Serious: No
  Sender: FDA-Public Use
  Company Number: US-ASTRAZENECA-2016SE82188

PATIENT
  Sex: Male
  Weight: 72.6 kg

DRUGS (4)
  1. EFFEXOR [Concomitant]
     Active Substance: VENLAFAXINE HYDROCHLORIDE
     Indication: PAIN
     Route: 048
  2. BYDUREON [Suspect]
     Active Substance: EXENATIDE
     Indication: TYPE 2 DIABETES MELLITUS
     Route: 058
     Dates: start: 201607
  3. LISINOPRIL. [Suspect]
     Active Substance: LISINOPRIL
     Indication: BLOOD PRESSURE ABNORMAL
     Route: 048
  4. PENZADINE [Concomitant]
     Indication: MUSCLE SPASMS
     Dosage: DAILY
     Route: 048

REACTIONS (3)
  - Injection site nodule [Recovering/Resolving]
  - Blood glucose decreased [Not Recovered/Not Resolved]
  - Muscle spasms [Unknown]
